FAERS Safety Report 17368552 (Version 1)
Quarter: 2020Q1

REPORT INFORMATION
  Report Type: Report from Study
  Country: US (occurrence: US)
  Receive Date: 20200204
  Receipt Date: 20200204
  Transmission Date: 20200409
  Serious: Yes (Other)
  Sender: FDA-Public Use
  Company Number: US-BAYER-2020-016872

PATIENT
  Sex: Female

DRUGS (2)
  1. AFRIN [Suspect]
     Active Substance: OXYMETAZOLINE
     Indication: NASAL CONGESTION
  2. AZELASTINE HYDROCHLORIDE. [Concomitant]
     Active Substance: AZELASTINE HYDROCHLORIDE

REACTIONS (7)
  - Nasal congestion [None]
  - Dyspnoea [None]
  - Drug dependence [Unknown]
  - Panic attack [None]
  - Nasal discomfort [None]
  - Incorrect product administration duration [Unknown]
  - Rebound nasal congestion [None]
